FAERS Safety Report 18569723 (Version 2)
Quarter: 2021Q3

REPORT INFORMATION
  Report Type: Spontaneous
  Country: US (occurrence: US)
  Receive Date: 20201202
  Receipt Date: 20210729
  Transmission Date: 20211014
  Serious: Yes (Other)
  Sender: FDA-Public Use
  Company Number: US-CLARUS THERAPEUTICS, INC.-2020-JATENZO-000015

PATIENT

DRUGS (7)
  1. JATENZO [Suspect]
     Active Substance: TESTOSTERONE UNDECANOATE
     Indication: PRODUCT USED FOR UNKNOWN INDICATION
     Dosage: 237 MILLIGRAM
     Route: 048
     Dates: start: 20200514, end: 202007
  2. COSAMIN [Concomitant]
     Indication: SUPPLEMENTATION THERAPY
     Route: 048
  3. VASCEPA [Concomitant]
     Active Substance: ICOSAPENT ETHYL
     Indication: BLOOD TRIGLYCERIDES INCREASED
     Dosage: UNK
     Route: 048
     Dates: start: 202007, end: 202010
  4. JATENZO [Suspect]
     Active Substance: TESTOSTERONE UNDECANOATE
     Dosage: 396 MILLIGRAM
     Dates: start: 202007
  5. CREATINE [Concomitant]
     Active Substance: CREATINE
     Indication: SUPPLEMENTATION THERAPY
     Route: 048
  6. LEVOTHYROXINE. [Concomitant]
     Active Substance: LEVOTHYROXINE
     Indication: PRODUCT USED FOR UNKNOWN INDICATION
     Dosage: 150 MICROGRAM
     Route: 048
  7. CRESTOR [Concomitant]
     Active Substance: ROSUVASTATIN CALCIUM
     Indication: BLOOD CHOLESTEROL INCREASED
     Dosage: UNK
     Route: 048
     Dates: start: 20201008, end: 202010

REACTIONS (4)
  - Blood testosterone decreased [Unknown]
  - Blood creatine phosphokinase increased [Unknown]
  - Autoimmune disorder [Unknown]
  - Blood creatine phosphokinase increased [Recovered/Resolved]
